FAERS Safety Report 17987176 (Version 1)
Quarter: 2020Q3

REPORT INFORMATION
  Report Type: Other
  Country: CA (occurrence: CA)
  Receive Date: 20200707
  Receipt Date: 20200707
  Transmission Date: 20201103
  Serious: Yes (Life-Threatening, Hospitalization)
  Sender: FDA-Public Use
  Company Number: CA-EMCURE PHARMACEUTICALS LTD-2020-EPL-000836

PATIENT
  Age: 9 Year
  Sex: Female
  Weight: 28 kg

DRUGS (19)
  1. OLANZAPINE. [Suspect]
     Active Substance: OLANZAPINE
     Indication: PRODUCT USED FOR UNKNOWN INDICATION
     Dosage: 2.5 MILLIGRAM, QD
     Route: 048
  2. DIMENHYDRINATE. [Concomitant]
     Active Substance: DIMENHYDRINATE
     Route: 042
  3. HEPARIN CALCIUM [Concomitant]
     Active Substance: HEPARIN CALCIUM
  4. LANSOPRAZOLE. [Concomitant]
     Active Substance: LANSOPRAZOLE
  5. ONDANSETRON [Suspect]
     Active Substance: ONDANSETRON
     Indication: PRODUCT USED FOR UNKNOWN INDICATION
     Dosage: 4 MILLIGRAM, 2 EVERY 1 DAYS
     Route: 048
  6. MUPIROCIN. [Concomitant]
     Active Substance: MUPIROCIN
     Route: 061
  7. BETAMETHASONE. [Concomitant]
     Active Substance: BETAMETHASONE
     Route: 061
  8. ACETAMINOPHEN. [Concomitant]
     Active Substance: ACETAMINOPHEN
  9. HYDROCORTISONE. [Concomitant]
     Active Substance: HYDROCORTISONE
     Dosage: POWDER FOR SOLUTION INTRAMUSCULAR
     Route: 030
  10. NABILONE [Concomitant]
     Active Substance: NABILONE
  11. FLUTICASONE. [Concomitant]
     Active Substance: FLUTICASONE
  12. OLANZAPINE. [Suspect]
     Active Substance: OLANZAPINE
     Dosage: 5 MILLIGRAM, QD
     Route: 048
  13. AMLODIPINE [Concomitant]
     Active Substance: AMLODIPINE BESYLATE
  14. LYSODREN [Concomitant]
     Active Substance: MITOTANE
  15. POLYETHYLENE GLYCOL [Concomitant]
     Active Substance: POLYETHYLENE GLYCOLS
  16. SULFAMETHOXAZOLE/TRIMETHOPRIM [Concomitant]
     Active Substance: SULFAMETHOXAZOLE\TRIMETHOPRIM
  17. MAGNESIUM [Concomitant]
     Active Substance: MAGNESIUM
  18. CLOTRIMAZOLE. [Concomitant]
     Active Substance: CLOTRIMAZOLE
  19. PRAZOSIN. [Concomitant]
     Active Substance: PRAZOSIN

REACTIONS (2)
  - Electrocardiogram QT prolonged [Unknown]
  - Disease progression [Unknown]
